FAERS Safety Report 16169819 (Version 1)
Quarter: 2019Q2

REPORT INFORMATION
  Report Type: Spontaneous
  Country: US (occurrence: US)
  Receive Date: 20190407
  Receipt Date: 20190407
  Transmission Date: 20190711
  Serious: Yes (Other)
  Sender: FDA-Public Use
  Company Number: None

PATIENT
  Sex: Female

DRUGS (15)
  1. HYDROCORTISONE. [Concomitant]
     Active Substance: HYDROCORTISONE
  2. POTASSIUM [Concomitant]
     Active Substance: POTASSIUM
  3. BETA-CAROTENE [Concomitant]
  4. NAC [Concomitant]
     Active Substance: ACETYLCYSTEINE
  5. PAPAYA. [Concomitant]
     Active Substance: PAPAYA
  6. L THEANINE [Concomitant]
  7. HYDROXYZINE HCL [Suspect]
     Active Substance: HYDROXYZINE HYDROCHLORIDE
     Indication: INSOMNIA
     Dosage: ?          QUANTITY:30 TABLET(S);?
     Route: 048
     Dates: start: 20190322, end: 20190407
  8. T3 [Concomitant]
     Active Substance: LIOTHYRONINE SODIUM
  9. METOPROLOL XR [Concomitant]
     Active Substance: METOPROLOL SUCCINATE
  10. ESTRADIOL. [Concomitant]
     Active Substance: ESTRADIOL
  11. ATIVAN [Concomitant]
     Active Substance: LORAZEPAM
  12. PROBIOTICS [Concomitant]
     Active Substance: PROBIOTICS NOS
  13. CALCIUM [Concomitant]
     Active Substance: CALCIUM
  14. PROGESTERONE. [Concomitant]
     Active Substance: PROGESTERONE
  15. ZINC. [Concomitant]
     Active Substance: ZINC

REACTIONS (3)
  - Back pain [None]
  - Pain in extremity [None]
  - Musculoskeletal pain [None]

NARRATIVE: CASE EVENT DATE: 20190406
